FAERS Safety Report 17567963 (Version 1)
Quarter: 2020Q1

REPORT INFORMATION
  Report Type: Spontaneous
  Country: NL (occurrence: DE)
  Receive Date: 20200320
  Receipt Date: 20200320
  Transmission Date: 20200409
  Serious: Yes (Hospitalization)
  Sender: FDA-Public Use
  Company Number: DE-FRESENIUS KABI-FK202002668

PATIENT
  Age: 69 Year
  Sex: Female

DRUGS (9)
  1. PACLITAXEL (MANUFACTURER UNKNOWN) [Suspect]
     Active Substance: PACLITAXEL
     Indication: PRODUCT USED FOR UNKNOWN INDICATION
     Dosage: 130MG, UNTIL 14NOV2019
     Route: 065
  2. CANDESARTAN. [Concomitant]
     Active Substance: CANDESARTAN
     Indication: PRODUCT USED FOR UNKNOWN INDICATION
     Dosage: 32 MG, NK, TABLET
     Route: 065
  3. METOPROLOL. [Concomitant]
     Active Substance: METOPROLOL
     Indication: PRODUCT USED FOR UNKNOWN INDICATION
     Dosage: 23.75 MG, NK, RETARD-TABLET
     Route: 065
  4. URAPIDIL [Concomitant]
     Active Substance: URAPIDIL
     Indication: PRODUCT USED FOR UNKNOWN INDICATION
     Dosage: 90 MG, NK, RETARD CAPSULES
     Route: 065
  5. URAPIDIL [Concomitant]
     Active Substance: URAPIDIL
     Dosage: 30 MG, NK, RETARD-KAPSELN
  6. NALOXONE/TILIDINE [Concomitant]
     Active Substance: NALOXONE HYDROCHLORIDE\TILIDINE HYDROCHLORIDE
     Indication: PRODUCT USED FOR UNKNOWN INDICATION
     Dosage: 8|100 MG, NK, RETARD-TABLET
     Route: 065
  7. PANTOPRAZOLE SODIUM SESQUIHYDRATE [Concomitant]
     Active Substance: PANTOPRAZOLE SODIUM
     Indication: PRODUCT USED FOR UNKNOWN INDICATION
     Dosage: 40 MG, NK, TABLET
     Route: 065
  8. FERROUS GLYCINE SULFATE [Concomitant]
     Active Substance: FERROUS GLYCINE SULFATE
     Indication: PRODUCT USED FOR UNKNOWN INDICATION
     Dosage: 55 MG, NK, RETARD-CAPSULE
     Route: 065
  9. LEVOTHYROXINE SODIUM. [Concomitant]
     Active Substance: LEVOTHYROXINE SODIUM
     Indication: PRODUCT USED FOR UNKNOWN INDICATION
     Dosage: 50 ?G, NK, TABLET
     Route: 065

REACTIONS (4)
  - Decreased appetite [Unknown]
  - Leukopenia [Unknown]
  - General physical health deterioration [Unknown]
  - Anaemia [Unknown]
